FAERS Safety Report 5238602-5 (Version None)
Quarter: 2007Q1

REPORT INFORMATION
  Report Type: 
  Country: None (occurrence: None)
  Receive Date: 20070215
  Receipt Date: 20070213
  Transmission Date: 20070707
  Serious: Yes (Hospitalization)
  Sender: FDA-Public Use
  Company Number: CA-SANOFI-SYNTHELABO-D01200604676

PATIENT
  Sex: Female
  Weight: 51 kg

DRUGS (6)
  1. ALTACE [Concomitant]
  2. LASIX [Concomitant]
  3. MONOCOR [Concomitant]
  4. LANOXIN [Concomitant]
  5. ASPIRIN [Concomitant]
     Indication: ATRIAL FIBRILLATION
     Dosage: 80 MG
     Route: 048
     Dates: start: 20051209
  6. CLOPIDOGREL [Suspect]
     Indication: ATRIAL FIBRILLATION
     Route: 048
     Dates: start: 20051209, end: 20051229

REACTIONS (3)
  - BALANCE DISORDER [None]
  - CHOLECYSTITIS CHRONIC [None]
  - FALL [None]
